FAERS Safety Report 4478389-7 (Version None)
Quarter: 2004Q4

REPORT INFORMATION
  Report Type: 
  Country: None (occurrence: None)
  Receive Date: 20041019
  Receipt Date: 20041012
  Transmission Date: 20050328
  Serious: Yes (Other)
  Sender: FDA-Public Use
  Company Number: PHBS2004GB13657

PATIENT
  Age: 26 Year
  Sex: Male

DRUGS (7)
  1. CYCLOSPORINE [Suspect]
     Indication: STEM CELL TRANSPLANT
     Dosage: 2.5 MG/KG, BID
     Route: 048
     Dates: end: 20020101
  2. NEUPOGEN [Concomitant]
     Dates: end: 20020101
  3. PREDNISOLONE [Concomitant]
     Dates: end: 20020601
  4. ANTIHYPERTENSIVES [Concomitant]
  5. METHOTREXATE [Concomitant]
  6. HUMAN RED BLOOD CELLS [Concomitant]
  7. PLATELETS [Concomitant]

REACTIONS (7)
  - ANAEMIA [None]
  - HYPERTENSION [None]
  - NEUTROPENIA [None]
  - PROTEINURIA [None]
  - RENAL IMPAIRMENT [None]
  - SPLENOMEGALY [None]
  - THROMBOCYTOPENIA [None]
